FAERS Safety Report 23566105 (Version 1)
Quarter: 2024Q1

REPORT INFORMATION
  Report Type: Spontaneous
  Country: IN (occurrence: IN)
  Receive Date: 20240226
  Receipt Date: 20240226
  Transmission Date: 20240410
  Serious: Yes (Other)
  Sender: FDA-Public Use
  Company Number: IN-AMGEN-INDSP2024036219

PATIENT
  Age: 22 Year
  Sex: Male

DRUGS (6)
  1. FILGRASTIM [Suspect]
     Active Substance: FILGRASTIM
     Indication: Acute lymphocytic leukaemia recurrent
     Dosage: 5 MICROGRAM/KILOGRAM, DOSE FOR A TOTAL OF SIX DOSES FROM DAYS 1 TO 6
     Route: 058
  2. DAUNORUBICIN [Concomitant]
     Active Substance: DAUNORUBICIN
     Indication: Acute lymphocytic leukaemia recurrent
     Dosage: UNK
     Route: 065
  3. CYTARABINE [Concomitant]
     Active Substance: CYTARABINE
     Indication: Acute lymphocytic leukaemia recurrent
     Dosage: UNK
     Route: 065
  4. FLUDARABINE [Concomitant]
     Active Substance: FLUDARABINE PHOSPHATE
     Indication: Acute lymphocytic leukaemia recurrent
     Dosage: 30 MILLIGRAM/SQ. METER
     Route: 042
  5. CYTOSINE [Concomitant]
     Active Substance: CYTOSINE
     Indication: Acute lymphocytic leukaemia recurrent
     Dosage: 2 GRAM PER SQUARE METRE
     Route: 042
  6. BORTEZOMIB [Concomitant]
     Active Substance: BORTEZOMIB
     Indication: Acute lymphocytic leukaemia recurrent
     Dosage: 1.3 MILLIGRAM/SQ. METER
     Route: 058

REACTIONS (1)
  - Febrile neutropenia [Recovered/Resolved]
